FAERS Safety Report 8202606-0 (Version None)
Quarter: 2012Q1

REPORT INFORMATION
  Report Type: 
  Country: None (occurrence: None)
  Receive Date: 20120312
  Receipt Date: 20120302
  Transmission Date: 20120608
  Serious: Yes (Other)
  Sender: FDA-Public Use
  Company Number: BR-ASTRAZENECA-2010SE00668

PATIENT
  Age: 58 Year
  Sex: Female
  Weight: 90 kg

DRUGS (2)
  1. ATACAND HCT [Suspect]
     Indication: HYPERTENSION
     Dosage: 16/12.5 ONCE A DAY
     Route: 048
     Dates: start: 20040101
  2. METOPROLOL SUCCINATE [Suspect]
     Indication: ARRHYTHMIA
     Route: 048
     Dates: start: 20040101

REACTIONS (4)
  - BREAST HYPERPLASIA [None]
  - BLOOD PRESSURE INADEQUATELY CONTROLLED [None]
  - BREAST HAEMORRHAGE [None]
  - DRUG INEFFECTIVE [None]
